FAERS Safety Report 6452777-1 (Version None)
Quarter: 2009Q4

REPORT INFORMATION
  Report Type: 
  Country: None (occurrence: None)
  Receive Date: 20091124
  Receipt Date: 20091112
  Transmission Date: 20100525
  Serious: Yes (Life-Threatening, Hospitalization)
  Sender: FDA-Public Use
  Company Number: JP-PFIZER INC-2009294131

PATIENT
  Age: 51 Year
  Sex: Male
  Weight: 68 kg

DRUGS (6)
  1. SUNITINIB MALATE [Suspect]
     Indication: GASTROINTESTINAL STROMAL TUMOUR
     Dosage: 50 MG, 1X/DAY
     Route: 048
     Dates: start: 20081126
  2. VOLTAREN [Concomitant]
     Dosage: UNK
     Route: 054
     Dates: start: 20081206
  3. KENALOG [Concomitant]
     Dosage: UNK
     Route: 062
     Dates: start: 20081213
  4. ARASENA A [Concomitant]
     Dosage: UNK
     Route: 062
     Dates: start: 20081218
  5. OMEPRAL [Concomitant]
     Dosage: UNK
     Route: 048
     Dates: start: 20090203
  6. FUNGIZONE [Concomitant]
     Dosage: UNK
     Route: 048
     Dates: start: 20081225

REACTIONS (3)
  - CHOLANGITIS ACUTE [None]
  - NEUTROPENIA [None]
  - THROMBOCYTOPENIA [None]
